FAERS Safety Report 16060673 (Version 1)
Quarter: 2019Q1

REPORT INFORMATION
  Report Type: Spontaneous
  Country: US (occurrence: US)
  Receive Date: 20190312
  Receipt Date: 20190312
  Transmission Date: 20190418
  Serious: No
  Sender: FDA-Public Use
  Company Number: US-LEO PHARMA-317288

PATIENT
  Age: 46 Year
  Sex: Female

DRUGS (3)
  1. PICATO [Suspect]
     Active Substance: INGENOL MEBUTATE
     Indication: ACTINIC KERATOSIS
     Route: 061
     Dates: start: 20190227, end: 20190227
  2. LIPITOR [Concomitant]
     Active Substance: ATORVASTATIN CALCIUM
     Indication: PRODUCT USED FOR UNKNOWN INDICATION
  3. LOSARTAN. [Concomitant]
     Active Substance: LOSARTAN
     Indication: PRODUCT USED FOR UNKNOWN INDICATION

REACTIONS (6)
  - Application site pain [Recovered/Resolved]
  - Application site swelling [Recovering/Resolving]
  - Incorrect product administration duration [Unknown]
  - Application site erythema [Recovering/Resolving]
  - Application site vesicles [Recovered/Resolved]
  - Application site inflammation [Recovering/Resolving]

NARRATIVE: CASE EVENT DATE: 20190228
